FAERS Safety Report 14070792 (Version 1)
Quarter: 2017Q4

REPORT INFORMATION
  Report Type: Spontaneous
  Country: US (occurrence: US)
  Receive Date: 20171010
  Receipt Date: 20171010
  Transmission Date: 20180321
  Serious: No
  Sender: FDA-Public Use
  Company Number: US-BAUSCH-BL-2017-013838

PATIENT
  Sex: Female

DRUGS (2)
  1. METROGEL-VAGINAL [Suspect]
     Active Substance: METRONIDAZOLE
     Indication: PRODUCT USED FOR UNKNOWN INDICATION
     Route: 067
     Dates: start: 201611, end: 2016
  2. METROGEL-VAGINAL [Suspect]
     Active Substance: METRONIDAZOLE
     Route: 067
     Dates: start: 201701, end: 2017

REACTIONS (7)
  - Skin irritation [Recovered/Resolved]
  - Swelling [Recovered/Resolved]
  - Inflammation [Recovering/Resolving]
  - Burning sensation [Unknown]
  - Blister [Unknown]
  - Chromaturia [Unknown]
  - Pain [Unknown]

NARRATIVE: CASE EVENT DATE: 2017
